FAERS Safety Report 9239847 (Version 3)
Quarter: 2014Q3

REPORT INFORMATION
  Report Type: Spontaneous
  Country: US (occurrence: US)
  Receive Date: 20130418
  Receipt Date: 20140731
  Transmission Date: 20150326
  Serious: Yes (Other)
  Sender: FDA-Public Use
  Company Number: US-009507513-1304USA007417

PATIENT
  Sex: Female
  Weight: 53.97 kg

DRUGS (4)
  1. NUVARING [Suspect]
     Active Substance: ETHINYL ESTRADIOL\ETONOGESTREL
     Indication: MENORRHAGIA
  2. NUVARING [Suspect]
     Active Substance: ETHINYL ESTRADIOL\ETONOGESTREL
     Indication: CONTRACEPTION
     Dosage: 0.12-0.015MG 24HR X 3WKS, REMOVE 1 WK
     Route: 067
     Dates: start: 2008, end: 20120626
  3. NUVARING [Suspect]
     Active Substance: ETHINYL ESTRADIOL\ETONOGESTREL
     Indication: MENSTRUATION IRREGULAR
  4. NUVARING [Suspect]
     Active Substance: ETHINYL ESTRADIOL\ETONOGESTREL
     Indication: DYSMENORRHOEA

REACTIONS (22)
  - Anaemia [Unknown]
  - Arthralgia [Unknown]
  - Tachycardia [Unknown]
  - Sciatica [Unknown]
  - Fibrocystic breast disease [Unknown]
  - Constipation [Unknown]
  - Varicose vein [Unknown]
  - Ovarian cyst [Unknown]
  - Anxiety [Unknown]
  - Arrhythmia [Unknown]
  - Multiple fractures [Unknown]
  - Deep vein thrombosis [Recovering/Resolving]
  - Hypertension [Unknown]
  - Off label use [Unknown]
  - Back pain [Unknown]
  - Cholecystectomy [Unknown]
  - Fall [Unknown]
  - Limb injury [Unknown]
  - Plastic surgery [Unknown]
  - Abortion [Unknown]
  - Gastric disorder [Unknown]
  - Uterine dilation and curettage [Unknown]

NARRATIVE: CASE EVENT DATE: 2008
